FAERS Safety Report 7985160-8 (Version None)
Quarter: 2011Q4

REPORT INFORMATION
  Report Type: 
  Country: None (occurrence: None)
  Receive Date: 20111216
  Receipt Date: 20111213
  Transmission Date: 20120403
  Serious: Yes (Life-Threatening, Other)
  Sender: FDA-Public Use
  Company Number: PHHY2011FR108786

PATIENT
  Sex: Female

DRUGS (6)
  1. POTASSIUM GLUCONATE TAB [Concomitant]
  2. MODOPAR [Concomitant]
  3. AMLODIPINE BESYLATE [Concomitant]
  4. EXELON [Suspect]
     Indication: DEMENTIA WITH LEWY BODIES
     Route: 062
     Dates: end: 20110702
  5. CLONAZEPAM [Concomitant]
  6. PREVISCAN [Concomitant]

REACTIONS (3)
  - BRADYCARDIA [None]
  - ATRIAL FIBRILLATION [None]
  - CARDIAC ARREST [None]
